FAERS Safety Report 8176307-1 (Version None)
Quarter: 2012Q1

REPORT INFORMATION
  Report Type: 
  Country: None (occurrence: None)
  Receive Date: 20120117
  Receipt Date: 20111118
  Transmission Date: 20120608
  Serious: Yes (Other)
  Sender: FDA-Public Use
  Company Number: 2011005909

PATIENT
  Age: 35 Year
  Sex: Male
  Weight: 97.5234 kg

DRUGS (3)
  1. HYDROCHLOROTHIAZIDE [Concomitant]
  2. ASPIRIN [Concomitant]
  3. NUVIGIL [Suspect]
     Indication: CIRCADIAN RHYTHM SLEEP DISORDER
     Dosage: 150 MG (150 MG,1 IN 1 D),ORAL
     Route: 048

REACTIONS (1)
  - SUICIDAL IDEATION [None]
